FAERS Safety Report 24586165 (Version 2)
Quarter: 2024Q4

REPORT INFORMATION
  Report Type: Spontaneous
  Country: US (occurrence: US)
  Receive Date: 20241106
  Receipt Date: 20241113
  Transmission Date: 20250114
  Serious: No
  Sender: ASTELLAS
  Company Number: US-ASTELLAS-2024-AER-016631

PATIENT
  Sex: Male
  Weight: 65 kg

DRUGS (3)
  1. XTANDI [Suspect]
     Active Substance: ENZALUTAMIDE
     Indication: Product used for unknown indication
     Route: 048
  2. TALZENNA [Suspect]
     Active Substance: TALAZOPARIB TOSYLATE
     Indication: Product used for unknown indication
     Dosage: 0.25 MG, 1 CAPSULE ONCE A DAY
     Route: 048
  3. LUPRON [Concomitant]
     Active Substance: LEUPROLIDE ACETATE
     Indication: Product used for unknown indication
     Route: 065

REACTIONS (3)
  - Pain [Unknown]
  - Arthralgia [Unknown]
  - Pain in extremity [Unknown]
